FAERS Safety Report 15705614 (Version 1)
Quarter: 2018Q4

REPORT INFORMATION
  Report Type: Spontaneous
  Country: CN (occurrence: CN)
  Receive Date: 20181210
  Receipt Date: 20181210
  Transmission Date: 20190205
  Serious: Yes (Hospitalization)
  Sender: FDA-Public Use
  Company Number: CN-ELI_LILLY_AND_COMPANY-CN201812001833

PATIENT
  Age: 43 Year
  Sex: Female
  Weight: 75 kg

DRUGS (6)
  1. GLUCOBAY [Concomitant]
     Active Substance: ACARBOSE
     Indication: PRODUCT USED FOR UNKNOWN INDICATION
  2. GLUCOPHAGE [Concomitant]
     Active Substance: METFORMIN HYDROCHLORIDE
     Indication: PRODUCT USED FOR UNKNOWN INDICATION
  3. LANTUS [Concomitant]
     Active Substance: INSULIN GLARGINE
     Indication: PRODUCT USED FOR UNKNOWN INDICATION
  4. HUMULIN R [Suspect]
     Active Substance: INSULIN HUMAN
     Indication: DIABETES MELLITUS
     Dosage: 12 IU, EACH MORNING
     Route: 058
     Dates: start: 2003, end: 20181126
  5. HUMULIN R [Suspect]
     Active Substance: INSULIN HUMAN
     Dosage: 11 IU, DAILY (AT NIGHT)
     Route: 058
     Dates: start: 2003, end: 20181126
  6. HUMULIN R [Suspect]
     Active Substance: INSULIN HUMAN
     Dosage: 8 IU, DAILY (AT NOON)
     Route: 058
     Dates: start: 2003, end: 20181126

REACTIONS (1)
  - Blood glucose abnormal [Unknown]
